FAERS Safety Report 9705117 (Version 2)
Quarter: 2013Q4

REPORT INFORMATION
  Report Type: Report from Study
  Country: ES (occurrence: ES)
  Receive Date: 20131122
  Receipt Date: 20131122
  Transmission Date: 20140711
  Serious: Yes (Life-Threatening, Hospitalization, Other)
  Sender: FDA-Public Use
  Company Number: ES-ABBVIE-09P-144-0497461-00

PATIENT
  Age: 33 Year
  Sex: Female
  Weight: 70 kg

DRUGS (2)
  1. HUMIRA [Suspect]
     Indication: CROHN^S DISEASE
     Route: 058
     Dates: start: 20081008, end: 20081128
  2. MESALAZINE [Concomitant]
     Indication: INFLAMMATORY BOWEL DISEASE
     Dates: start: 200310

REACTIONS (1)
  - Breast cancer [Unknown]
